FAERS Safety Report 4478604-X (Version None)
Quarter: 2004Q4

REPORT INFORMATION
  Report Type: 
  Country: None (occurrence: None)
  Receive Date: 20040923
  Receipt Date: 20040825
  Transmission Date: 20050328
  Serious: No
  Sender: FDA-Public Use
  Company Number: 206758

PATIENT
  Age: 55 Year
  Sex: Female
  Weight: 88.5 kg

DRUGS (2)
  1. AVASTIN [Suspect]
     Indication: OVARIAN CANCER
     Dosage: 890 MG, Q2W, INTRAVENOUS
     Route: 042
     Dates: start: 20040223
  2. CYTOXAN [Concomitant]

REACTIONS (1)
  - SKIN HYPERPIGMENTATION [None]
